FAERS Safety Report 8784367 (Version 1)
Quarter: 2012Q4

REPORT INFORMATION
  Report Type: Report from Study
  Country: US (occurrence: US)
  Receive Date: 20120913
  Receipt Date: 20120913
  Transmission Date: 20130627
  Serious: Yes (Death)
  Sender: FDA-Public Use
  Company Number: US-US-EMD SERONO, INC.-7158406

PATIENT
  Age: 41 Year
  Sex: Male
  Weight: 36 kg

DRUGS (3)
  1. REBIF [Suspect]
     Indication: PRODUCT USED FOR UNKNOWN INDICATION
     Route: 058
     Dates: start: 20120723, end: 20120909
  2. TYLENOL [Concomitant]
     Indication: PREMEDICATION
  3. UNSPECIFIED MEDICATIONS [Concomitant]
     Indication: PAIN

REACTIONS (1)
  - Death [Fatal]
